FAERS Safety Report 19773572 (Version 1)
Quarter: 2021Q3

REPORT INFORMATION
  Report Type: Spontaneous
  Country: GB (occurrence: GB)
  Receive Date: 20210901
  Receipt Date: 20210901
  Transmission Date: 20211014
  Serious: Yes (Other)
  Sender: FDA-Public Use
  Company Number: GB-TEVA-2021-GB-1947274

PATIENT
  Age: 56 Year
  Sex: Female

DRUGS (7)
  1. ONDANSETRON [Concomitant]
     Active Substance: ONDANSETRON
     Indication: ILL-DEFINED DISORDER
     Dosage: 8MG IN 4ML AMP
  2. ZOLEDRONIC ACID [Concomitant]
     Active Substance: ZOLEDRONIC ACID
     Indication: ILL-DEFINED DISORDER
     Dosage: 4MG/100ML
  3. PACLITAXEL. [Concomitant]
     Active Substance: PACLITAXEL
     Indication: ILL-DEFINED DISORDER
     Dosage: 124.2MG/250ML SODIUM CHLOR 0.9%.
  4. ADCAL?D3 [Concomitant]
     Active Substance: CALCIUM CARBONATE\CHOLECALCIFEROL
     Indication: ILL-DEFINED DISORDER
  5. FILGRASTIM [Suspect]
     Active Substance: FILGRASTIM
     Indication: ILL-DEFINED DISORDER
     Dosage: 300MCG (0.5ML)
     Route: 058
     Dates: start: 202106
  6. DEXAMETHASONE. [Concomitant]
     Active Substance: DEXAMETHASONE
     Indication: ILL-DEFINED DISORDER
     Dosage: 6.6MG/2ML
  7. CHLORPHENAMINE [Concomitant]
     Active Substance: CHLORPHENIRAMINE MALEATE
     Indication: ILL-DEFINED DISORDER
     Dosage: 10 MG/ML

REACTIONS (2)
  - Back pain [Unknown]
  - Neutropenia [Unknown]
